FAERS Safety Report 13119046 (Version 2)
Quarter: 2017Q1

REPORT INFORMATION
  Report Type: Spontaneous
  Country: US (occurrence: US)
  Receive Date: 20170116
  Receipt Date: 20170125
  Transmission Date: 20170428
  Serious: Yes (Other)
  Sender: FDA-Public Use
  Company Number: US-ELI_LILLY_AND_COMPANY-US201701003093

PATIENT
  Age: 54 Year
  Sex: Female
  Weight: 83.45 kg

DRUGS (9)
  1. FLOLAN [Suspect]
     Active Substance: EPOPROSTENOL SODIUM
     Indication: PULMONARY ARTERIAL HYPERTENSION
     Dosage: 49.7 DF, UNKNOWN
     Route: 042
     Dates: start: 20060725
  2. ADCIRCA [Suspect]
     Active Substance: TADALAFIL
     Indication: PRODUCT USED FOR UNKNOWN INDICATION
     Dosage: 40 MG, QD
     Route: 065
     Dates: start: 20160801
  3. FLOLAN [Suspect]
     Active Substance: EPOPROSTENOL SODIUM
     Dosage: 62.5 DF, UNKNOWN
     Route: 042
  4. ALBUTEROL                          /00139501/ [Suspect]
     Active Substance: ALBUTEROL
     Indication: PRODUCT USED FOR UNKNOWN INDICATION
     Dosage: UNK, UNKNOWN
     Route: 065
  5. LETAIRIS [Suspect]
     Active Substance: AMBRISENTAN
     Indication: PRODUCT USED FOR UNKNOWN INDICATION
     Dosage: UNK, UNKNOWN
     Route: 065
     Dates: start: 20160822
  6. LASIX [Suspect]
     Active Substance: FUROSEMIDE
     Indication: OEDEMA
     Dosage: UNK, UNKNOWN
     Route: 065
  7. ADCIRCA [Suspect]
     Active Substance: TADALAFIL
     Dosage: 30 MG, QD
     Route: 065
  8. FLOLAN [Suspect]
     Active Substance: EPOPROSTENOL SODIUM
     Dosage: 64 DF, UNKNOWN
     Route: 042
  9. LASIX [Suspect]
     Active Substance: FUROSEMIDE
     Dosage: 20 MG, QD
     Route: 065

REACTIONS (51)
  - Adrenal disorder [Unknown]
  - Amnesia [Unknown]
  - Blood urea abnormal [Unknown]
  - Pain in jaw [Unknown]
  - Pain in extremity [Unknown]
  - Gastrooesophageal reflux disease [Unknown]
  - Fatigue [Recovered/Resolved]
  - Vision blurred [Unknown]
  - Thyroid mass [Not Recovered/Not Resolved]
  - Blood sodium decreased [Not Recovered/Not Resolved]
  - Asthenia [Unknown]
  - Back pain [Unknown]
  - Headache [Unknown]
  - Nausea [Unknown]
  - Diarrhoea [Recovering/Resolving]
  - Vomiting [Unknown]
  - Angina pectoris [Unknown]
  - Echocardiogram abnormal [Unknown]
  - Mental status changes [Unknown]
  - Joint crepitation [Not Recovered/Not Resolved]
  - Weight decreased [Recovered/Resolved]
  - Heart rate decreased [Unknown]
  - Pain [Unknown]
  - Oedema [Recovered/Resolved]
  - Hypotension [Recovering/Resolving]
  - Contusion [Unknown]
  - Catheter site haemorrhage [Unknown]
  - Anxiety [Unknown]
  - Dyspnoea [Not Recovered/Not Resolved]
  - Blood pressure abnormal [Unknown]
  - Incorrect dose administered [Unknown]
  - Deafness [Unknown]
  - Fall [Recovered/Resolved]
  - Abnormal behaviour [Unknown]
  - Haemoptysis [Unknown]
  - Bronchitis [Unknown]
  - Sinus headache [Unknown]
  - Muscle spasms [Recovering/Resolving]
  - Hypoacusis [Unknown]
  - Migraine [Unknown]
  - Alopecia [Unknown]
  - Neuropathy peripheral [Not Recovered/Not Resolved]
  - Stress [Unknown]
  - Depression [Not Recovered/Not Resolved]
  - Drug ineffective [Unknown]
  - Device dislocation [Unknown]
  - Carbon dioxide abnormal [Unknown]
  - Skin discolouration [Unknown]
  - Oxygen saturation decreased [Unknown]
  - Heart rate increased [Recovering/Resolving]
  - Blood magnesium decreased [Not Recovered/Not Resolved]

NARRATIVE: CASE EVENT DATE: 201610
